FAERS Safety Report 18383959 (Version 1)
Quarter: 2020Q4

REPORT INFORMATION
  Report Type: Spontaneous
  Country: JP (occurrence: JP)
  Receive Date: 20201014
  Receipt Date: 20201014
  Transmission Date: 20210114
  Serious: Yes (Disabling, Other)
  Sender: FDA-Public Use
  Company Number: JP-BAXTER-2020BAX020601

PATIENT
  Age: 66 Year
  Sex: Male
  Weight: 82 kg

DRUGS (8)
  1. SUPRANE [Suspect]
     Active Substance: DESFLURANE
     Indication: ANAESTHESIA PROCEDURE
     Route: 065
     Dates: start: 20181016, end: 20181016
  2. BRIDION [Suspect]
     Active Substance: SUGAMMADEX
     Indication: SURGERY
     Route: 065
     Dates: start: 20181016, end: 20181016
  3. PROPOFOL. [Suspect]
     Active Substance: PROPOFOL
     Indication: ANAESTHESIA PROCEDURE
     Route: 065
     Dates: start: 20181016, end: 20181016
  4. FLUMARIN [FLOMOXEF SODIUM] [Suspect]
     Active Substance: FLOMOXEF SODIUM
     Indication: ANTIBIOTIC THERAPY
  5. FENTANYL. [Suspect]
     Active Substance: FENTANYL
     Indication: ANAESTHESIA PROCEDURE
     Route: 065
     Dates: start: 20181016, end: 20181016
  6. ROCURONIUM BROMIDE. [Suspect]
     Active Substance: ROCURONIUM BROMIDE
     Indication: ANAESTHESIA PROCEDURE
     Route: 065
     Dates: start: 20181016, end: 20181016
  7. FLUMARIN [FLOMOXEF SODIUM] [Suspect]
     Active Substance: FLOMOXEF SODIUM
     Indication: SURGERY
     Route: 065
     Dates: start: 20181016, end: 20181016
  8. ULTIVA [Suspect]
     Active Substance: REMIFENTANIL HYDROCHLORIDE
     Indication: ANAESTHESIA PROCEDURE
     Route: 065
     Dates: start: 20181016, end: 20181016

REACTIONS (4)
  - Hypoxic-ischaemic encephalopathy [Not Recovered/Not Resolved]
  - Cardiac arrest [Unknown]
  - Respiratory disorder [Unknown]
  - Respiratory failure [Unknown]

NARRATIVE: CASE EVENT DATE: 20181016
